FAERS Safety Report 17250914 (Version 2)
Quarter: 2020Q1

REPORT INFORMATION
  Report Type: Spontaneous
  Country: US (occurrence: US)
  Receive Date: 20200109
  Receipt Date: 20200127
  Transmission Date: 20200409
  Serious: No
  Sender: FDA-Public Use
  Company Number: US-CELGENEUS-USA-20200100213

PATIENT
  Sex: Female

DRUGS (1)
  1. OTEZLA [Suspect]
     Active Substance: APREMILAST
     Indication: PSORIATIC ARTHROPATHY
     Dosage: TITRATION PACK: START: 10 MG IN THE AMX1 DAY, THEN 10 MG TWICE DAILY?X1 DAY, THEN 10 MG IN THE AM AN
     Route: 048

REACTIONS (1)
  - Diarrhoea [Recovered/Resolved]
